FAERS Safety Report 11362129 (Version 1)
Quarter: 2015Q3

REPORT INFORMATION
  Report Type: Spontaneous
  Country: CN (occurrence: CN)
  Receive Date: 20150810
  Receipt Date: 20150810
  Transmission Date: 20151125
  Serious: Yes (Death, Hospitalization)
  Sender: FDA-Public Use
  Company Number: CN-BAYER-2015-395737

PATIENT
  Age: 51 Year
  Sex: Male

DRUGS (1)
  1. NEXAVAR [Suspect]
     Active Substance: SORAFENIB
     Indication: HEPATOCELLULAR CARCINOMA
     Dosage: 400 MG, BID
     Route: 050
     Dates: start: 20150424, end: 201507

REACTIONS (2)
  - Death [Fatal]
  - Hospitalisation [None]

NARRATIVE: CASE EVENT DATE: 201507
